FAERS Safety Report 16161561 (Version 3)
Quarter: 2019Q2

REPORT INFORMATION
  Report Type: Spontaneous
  Country: JP (occurrence: JP)
  Receive Date: 20190405
  Receipt Date: 20190521
  Transmission Date: 20190711
  Serious: Yes (Life-Threatening, Hospitalization, Other)
  Sender: FDA-Public Use
  Company Number: JP-TEVA-201904_00002984

PATIENT
  Age: 37 Year
  Sex: Female

DRUGS (5)
  1. MYSLEE [Suspect]
     Active Substance: ZOLPIDEM TARTRATE
     Indication: SUICIDE ATTEMPT
     Route: 048
  2. ROZEREM [Suspect]
     Active Substance: RAMELTEON
     Indication: INSOMNIA
     Route: 048
  3. ROZEREM [Suspect]
     Active Substance: RAMELTEON
     Indication: SUICIDE ATTEMPT
  4. LENDORMIN [Suspect]
     Active Substance: BROTIZOLAM
     Indication: SUICIDE ATTEMPT
     Route: 048
  5. EURODIN 1MG. TABLETS [Suspect]
     Active Substance: ESTAZOLAM
     Indication: SUICIDE ATTEMPT
     Route: 048

REACTIONS (9)
  - Intentional overdose [Unknown]
  - Toxicity to various agents [Recovered/Resolved]
  - Traumatic liver injury [Recovered/Resolved]
  - Contusion [Recovered/Resolved with Sequelae]
  - Pelvic fracture [Recovered/Resolved with Sequelae]
  - Subdural haematoma [Recovered/Resolved]
  - Delirium [Recovered/Resolved]
  - Fall [Unknown]
  - Subarachnoid haemorrhage [Recovered/Resolved]

NARRATIVE: CASE EVENT DATE: 20141026
